FAERS Safety Report 6380957-2 (Version None)
Quarter: 2009Q3

REPORT INFORMATION
  Report Type: 
  Country: None (occurrence: None)
  Receive Date: 20090929
  Receipt Date: 20090917
  Transmission Date: 20100115
  Serious: Yes (Hospitalization)
  Sender: FDA-Public Use
  Company Number: JP-SANOFI-SYNTHELABO-A01200908207

PATIENT
  Sex: Female
  Weight: 60 kg

DRUGS (8)
  1. STRONG NEO-MINOPHAGEN C [Concomitant]
     Indication: DRUG USE FOR UNKNOWN INDICATION
     Dosage: UNK
     Route: 065
     Dates: start: 20020101
  2. FAMOTIDINE [Concomitant]
     Indication: DRUG USE FOR UNKNOWN INDICATION
     Dosage: UNK
     Route: 048
  3. ALOSENN [Concomitant]
     Dosage: UNK
     Route: 065
  4. URSO 250 [Concomitant]
     Indication: DRUG USE FOR UNKNOWN INDICATION
     Dosage: UNK
     Route: 048
  5. SELBEX [Concomitant]
     Indication: DRUG USE FOR UNKNOWN INDICATION
     Dosage: UNK
     Route: 048
  6. LIVACT [Concomitant]
     Indication: DRUG USE FOR UNKNOWN INDICATION
     Dosage: UNK
     Route: 065
  7. MYSLEE [Suspect]
     Indication: INSOMNIA
     Route: 048
     Dates: start: 20090305, end: 20090529
  8. MYSLEE [Suspect]
     Route: 048
     Dates: start: 20090530, end: 20090530

REACTIONS (3)
  - ANTEROGRADE AMNESIA [None]
  - FALL [None]
  - SPINAL COMPRESSION FRACTURE [None]
